FAERS Safety Report 4518569-5 (Version None)
Quarter: 2004Q4

REPORT INFORMATION
  Report Type: 
  Country: None (occurrence: None)
  Receive Date: 20041201
  Receipt Date: 20041117
  Transmission Date: 20050328
  Serious: Yes (Death)
  Sender: FDA-Public Use
  Company Number: 2004AL000157

PATIENT
  Age: 54 Year
  Sex: Female

DRUGS (20)
  1. KADIAN (MORHPINE SULFATE SUSTAINED RELEASE) CAPSULES, 100 MG (ALPHARMA [Suspect]
  2. CATAPRES-TTS-2 [Concomitant]
  3. DURAGESIC [Concomitant]
  4. MAVIK [Concomitant]
  5. ZOCOR [Concomitant]
  6. BEXTRA [Concomitant]
  7. BACLOFEN [Concomitant]
  8. NEURONTIN [Concomitant]
  9. ALPRAZOLAM [Concomitant]
  10. LEVAQUIN [Concomitant]
  11. FUROSEMIDE [Concomitant]
  12. POTASSIUM CHLORIDE [Concomitant]
  13. OXYCODONE AND ACETAMINOPHEN [Concomitant]
  14. CELEXA [Concomitant]
  15. OXYBUTYNIN [Concomitant]
  16. CIPROFLOXACIN [Concomitant]
  17. DESOWEN [Concomitant]
  18. DIPROLENE [Concomitant]
  19. METROGEL [Concomitant]
  20. CAPSAICIN CREAM [Concomitant]

REACTIONS (4)
  - COMA [None]
  - DRUG TOXICITY [None]
  - LETHARGY [None]
  - MULTIPLE DRUG OVERDOSE ACCIDENTAL [None]
